FAERS Safety Report 8619337-5 (Version None)
Quarter: 2012Q3

REPORT INFORMATION
  Report Type: 
  Country: None (occurrence: None)
  Receive Date: 20120824
  Receipt Date: 20120820
  Transmission Date: 20120928
  Serious: Yes (Hospitalization)
  Sender: FDA-Public Use
  Company Number: NL-PFIZER INC-2012204584

PATIENT
  Sex: Female
  Weight: 82.4 kg

DRUGS (7)
  1. LEVOTHYROXINE [Concomitant]
     Indication: PRIMARY HYPOTHYROIDISM
  2. LEVOTHYROXINE [Concomitant]
     Indication: BLOOD THYROID STIMULATING HORMONE DECREASED
     Dosage: UNK
     Dates: start: 19980115, end: 20070524
  3. FEMOSTON [Concomitant]
     Indication: BLOOD LUTEINISING HORMONE DECREASED
     Dosage: UNK
     Dates: start: 19980311
  4. FEMOSTON [Concomitant]
     Indication: HYPOGONADISM FEMALE
  5. GENOTROPIN [Suspect]
     Indication: GROWTH HORMONE DEFICIENCY
     Dosage: 0.8 MG, 7/WK
     Route: 058
     Dates: start: 20060622
  6. COZAAR [Concomitant]
     Indication: HYPERTENSION
     Dosage: UNK
     Dates: start: 20030924
  7. FEMOSTON [Concomitant]
     Indication: BLOOD FOLLICLE STIMULATING HORMONE DECREASED

REACTIONS (1)
  - CYSTITIS [None]
